FAERS Safety Report 5781743-4 (Version None)
Quarter: 2008Q2

REPORT INFORMATION
  Report Type: 
  Country: None (occurrence: None)
  Receive Date: 20080623
  Receipt Date: 20080612
  Transmission Date: 20081010
  Serious: Yes (Hospitalization, Other)
  Sender: FDA-Public Use
  Company Number: US-BAYER-200821737NA

PATIENT
  Age: 71 Year
  Sex: Female

DRUGS (10)
  1. AVELOX [Suspect]
     Indication: CELLULITIS
     Dosage: TOTAL DAILY DOSE: 400 MG  UNIT DOSE: 400 MG
     Route: 048
     Dates: start: 20071116, end: 20071116
  2. AVELOX [Suspect]
     Dosage: TOTAL DAILY DOSE: 400 MG  UNIT DOSE: 400 MG
     Route: 048
     Dates: start: 20050101
  3. CIPROFLOXACIN HCL [Suspect]
     Indication: LOCALISED INFECTION
     Dates: start: 20071101, end: 20071115
  4. INDERAL LA [Concomitant]
     Dosage: TOTAL DAILY DOSE: 80 MG
  5. HYDROCHLOROTHIAZIDE [Concomitant]
     Dosage: TOTAL DAILY DOSE: 25 MG
  6. COZAAR [Concomitant]
     Dosage: TOTAL DAILY DOSE: 50 MG
  7. LIPITOR [Concomitant]
     Dosage: TOTAL DAILY DOSE: 10 MG
  8. TRICOR [Concomitant]
     Dosage: TOTAL DAILY DOSE: 145 MG
  9. GLIPIZIDE [Concomitant]
     Dosage: TOTAL DAILY DOSE: 5 MG
     Route: 048
  10. INFLUENZA VACCINE [Concomitant]
     Dates: start: 20071101, end: 20071101

REACTIONS (13)
  - ANAPHYLACTIC REACTION [None]
  - ASTHENIA [None]
  - CHILLS [None]
  - DIARRHOEA [None]
  - DIZZINESS [None]
  - HYPOTENSION [None]
  - HYPOTHERMIA [None]
  - OBSTRUCTIVE AIRWAYS DISORDER [None]
  - PRURITUS [None]
  - RESPIRATORY DISTRESS [None]
  - URTICARIA [None]
  - VISION BLURRED [None]
  - WHEEZING [None]
